FAERS Safety Report 15144054 (Version 2)
Quarter: 2018Q3

REPORT INFORMATION
  Report Type: Spontaneous
  Country: IT (occurrence: IT)
  Receive Date: 20180713
  Receipt Date: 20180807
  Transmission Date: 20181010
  Serious: Yes (Other)
  Sender: FDA-Public Use
  Company Number: IT-BAYER-2018-126871

PATIENT
  Age: 71 Year
  Sex: Male

DRUGS (3)
  1. STIVARGA [Suspect]
     Active Substance: REGORAFENIB
     Indication: COLON CANCER
     Dosage: DAILY DOSE 120 MG
     Route: 048
     Dates: start: 201511
  2. STIVARGA [Suspect]
     Active Substance: REGORAFENIB
     Indication: COLON CANCER
     Dosage: DAILY DOSE 160 MG FOR 21 DAYS FOLLOWED BY A 7? DAY BREAK
     Route: 048
     Dates: start: 20151015, end: 20180330
  3. STIVARGA [Suspect]
     Active Substance: REGORAFENIB
     Indication: COLON CANCER
     Dosage: DAILY DOSE 80 MG

REACTIONS (14)
  - Colon cancer metastatic [None]
  - Decreased appetite [Recovering/Resolving]
  - Muscle spasms [Not Recovered/Not Resolved]
  - Drug intolerance [None]
  - Asthenia [None]
  - Asthenia [Not Recovered/Not Resolved]
  - Hypertransaminasaemia [None]
  - Diarrhoea [None]
  - Skin ulcer [None]
  - Hypertransaminasaemia [None]
  - Asthenia [Not Recovered/Not Resolved]
  - Skin ulcer [Not Recovered/Not Resolved]
  - Muscle spasms [None]
  - Palmar-plantar erythrodysaesthesia syndrome [Recovering/Resolving]

NARRATIVE: CASE EVENT DATE: 201501
